FAERS Safety Report 7929785-4 (Version None)
Quarter: 2011Q4

REPORT INFORMATION
  Report Type: 
  Country: None (occurrence: None)
  Receive Date: 20111108
  Receipt Date: 20110427
  Transmission Date: 20120403
  Serious: Yes (Other)
  Sender: FDA-Public Use
  Company Number: PHHY2011US25854

PATIENT
  Age: 62 Year
  Sex: Male
  Weight: 111.4 kg

DRUGS (6)
  1. ZOMETA [Suspect]
     Indication: MULTIPLE MYELOMA
     Dosage: 4 MG, QMO, IV INFUSION
     Route: 042
  2. LOMOTIL [Concomitant]
  3. FLEXERIL [Concomitant]
  4. MS CONTIN [Concomitant]
  5. SOMA [Concomitant]
  6. REVLIMID [Concomitant]

REACTIONS (3)
  - MUSCLE SPASMS [None]
  - GAIT DISTURBANCE [None]
  - DIARRHOEA [None]
